FAERS Safety Report 20602130 (Version 2)
Quarter: 2024Q3

REPORT INFORMATION
  Report Type: Report from Study
  Country: CA (occurrence: CA)
  Receive Date: 20220316
  Receipt Date: 20240708
  Transmission Date: 20241017
  Serious: No
  Sender: AMGEN
  Company Number: CA-002147023-NVSC2022CA056909

PATIENT
  Age: 50 Year
  Sex: Female

DRUGS (2)
  1. AIMOVIG [Suspect]
     Active Substance: ERENUMAB-AOOE
     Indication: Migraine
     Dosage: UNK
     Route: 065
     Dates: start: 20220208
  2. TOPIRAMATE [Suspect]
     Active Substance: TOPIRAMATE
     Indication: Migraine
     Dosage: UNK
     Route: 065
     Dates: start: 20211015

REACTIONS (4)
  - Brain fog [Unknown]
  - Headache [Unknown]
  - Decreased activity [Unknown]
  - Mental disorder [Unknown]
